FAERS Safety Report 8005106-6 (Version None)
Quarter: 2011Q4

REPORT INFORMATION
  Report Type: 
  Country: None (occurrence: None)
  Receive Date: 20111223
  Receipt Date: 20111208
  Transmission Date: 20120403
  Serious: Yes (Hospitalization, Other)
  Sender: FDA-Public Use
  Company Number: PHHY2011JP107473

PATIENT
  Age: 64 Year
  Sex: Male

DRUGS (3)
  1. AMLODIPINE [Concomitant]
     Indication: HYPERTENSION
     Dates: start: 20070806
  2. AMLODIPINE [Concomitant]
  3. VALSARTAN [Suspect]
     Indication: HYPERTENSION
     Dates: start: 20070604

REACTIONS (11)
  - PULMONARY TOXICITY [None]
  - CELL MARKER INCREASED [None]
  - DYSPNOEA EXERTIONAL [None]
  - LYMPHOCYTE STIMULATION TEST POSITIVE [None]
  - COUGH [None]
  - BLOOD PRESSURE INADEQUATELY CONTROLLED [None]
  - PNEUMONITIS [None]
  - ALVEOLITIS [None]
  - SURFACTANT PROTEIN INCREASED [None]
  - HYPOXIA [None]
  - BRONCHIECTASIS [None]
